FAERS Safety Report 8383077-0 (Version None)
Quarter: 2012Q2

REPORT INFORMATION
  Report Type: 
  Country: None (occurrence: None)
  Receive Date: 20120524
  Receipt Date: 20120510
  Transmission Date: 20120825
  Serious: Yes (Hospitalization)
  Sender: FDA-Public Use
  Company Number: US-JNJFOC-20120213166

PATIENT
  Sex: Female
  Weight: 114.31 kg

DRUGS (3)
  1. REMICADE [Suspect]
     Indication: CROHN'S DISEASE
     Route: 042
     Dates: start: 20110501
  2. COUMADIN [Concomitant]
     Indication: DEEP VEIN THROMBOSIS
     Route: 065
  3. COUMADIN [Concomitant]
     Indication: PULMONARY EMBOLISM
     Route: 065

REACTIONS (9)
  - FALL [None]
  - OVARIAN CYST [None]
  - INTERNATIONAL NORMALISED RATIO INCREASED [None]
  - BACK PAIN [None]
  - GASTROOESOPHAGEAL REFLUX DISEASE [None]
  - OSTEOARTHRITIS [None]
  - ANAEMIA [None]
  - CORONARY ARTERY DISEASE [None]
  - HEPATIC STEATOSIS [None]
